FAERS Safety Report 10306068 (Version 1)
Quarter: 2014Q3

REPORT INFORMATION
  Report Type: Spontaneous
  Country: CN (occurrence: CN)
  Receive Date: 20140715
  Receipt Date: 20140715
  Transmission Date: 20150326
  Serious: Yes (Other)
  Sender: FDA-Public Use
  Company Number: CN-GLAXOSMITHKLINE-B1013254A

PATIENT
  Age: 12 Year
  Sex: Male
  Weight: 40 kg

DRUGS (3)
  1. SODIUM VALPROATE [Concomitant]
     Active Substance: VALPROATE SODIUM
     Dosage: .75G PER DAY
  2. LAMICTAL [Suspect]
     Active Substance: LAMOTRIGINE
     Indication: EPILEPSY
     Dosage: 12.5MG PER DAY
     Route: 048
     Dates: start: 20121105, end: 20121105
  3. CARBAMAZEPINE. [Concomitant]
     Active Substance: CARBAMAZEPINE
     Dosage: .2G TWICE PER DAY

REACTIONS (2)
  - Henoch-Schonlein purpura [Recovering/Resolving]
  - Ecchymosis [Recovering/Resolving]

NARRATIVE: CASE EVENT DATE: 20121111
